FAERS Safety Report 25272391 (Version 3)
Quarter: 2025Q2

REPORT INFORMATION
  Report Type: Spontaneous
  Country: JP (occurrence: JP)
  Receive Date: 20250506
  Receipt Date: 20250528
  Transmission Date: 20250717
  Serious: Yes (Death)
  Sender: ABBVIE
  Company Number: JP-PFIZER INC-202500091392

PATIENT
  Age: 70 Year
  Sex: Female
  Weight: 37.4 kg

DRUGS (2)
  1. AVIBACTAM SODIUM\CEFTAZIDIME [Suspect]
     Active Substance: AVIBACTAM SODIUM\CEFTAZIDIME
     Indication: Sepsis
     Dosage: 0.94 G, DAILY
     Route: 042
     Dates: start: 20250411, end: 20250415
  2. AZACTAM [Concomitant]
     Active Substance: AZTREONAM
     Indication: Dysbiosis
     Dates: start: 20250411, end: 20250415

REACTIONS (2)
  - Thrombotic microangiopathy [Fatal]
  - Condition aggravated [Fatal]

NARRATIVE: CASE EVENT DATE: 20250415
